FAERS Safety Report 13489832 (Version 3)
Quarter: 2017Q2

REPORT INFORMATION
  Report Type: Spontaneous
  Country: US (occurrence: US)
  Receive Date: 20170426
  Receipt Date: 20170626
  Transmission Date: 20170830
  Serious: Yes (Hospitalization)
  Sender: FDA-Public Use
  Company Number: US-IMPAX LABORATORIES, INC-2017-IPXL-01132

PATIENT
  Age: 66 Year
  Sex: Female
  Weight: 69 kg

DRUGS (7)
  1. HUMIRA [Concomitant]
     Active Substance: ADALIMUMAB
     Indication: IMMUNOSUPPRESSION
     Dosage: UNK
     Route: 065
     Dates: start: 200701
  2. RYTARY [Suspect]
     Active Substance: CARBIDOPA\LEVODOPA
     Dosage: 48.75/195 MG, 4 CAPSULES, THEN 5 HOURS LATER 4 CAPSULES, AND THEN 5 HOURS LATER 3 CAPSULES
     Route: 048
     Dates: start: 20170412
  3. FLUORIDE [Concomitant]
     Active Substance: SODIUM FLUORIDE
     Indication: PRODUCT USED FOR UNKNOWN INDICATION
     Dosage: UNK
     Route: 065
  4. RYTARY [Suspect]
     Active Substance: CARBIDOPA\LEVODOPA
     Dosage: 48.75/195 MG, 4 CAPSULES, THEN 5 HOURS LATER 3 CAPSULES, AND THEN 5 HOURS LATER 3 CAPSULES
     Route: 048
     Dates: start: 20161117
  5. METHOTREXATE. [Concomitant]
     Active Substance: METHOTREXATE
     Indication: IMMUNOSUPPRESSION
     Dosage: UNK
     Route: 065
     Dates: start: 200701
  6. RYTARY [Suspect]
     Active Substance: CARBIDOPA\LEVODOPA
     Indication: PARKINSON^S DISEASE
     Dosage: 48.75/195 MG, 4 DF, 3 /DAY
     Route: 048
     Dates: start: 20161101
  7. ASPIRIN. [Concomitant]
     Active Substance: ASPIRIN
     Indication: PRODUCT USED FOR UNKNOWN INDICATION
     Dosage: 81 MG, UNK
     Route: 065
     Dates: start: 201704

REACTIONS (18)
  - Feeling drunk [Recovered/Resolved]
  - Dry mouth [Not Recovered/Not Resolved]
  - Heart rate increased [Unknown]
  - Tremor [Recovered/Resolved]
  - Platelet count decreased [Unknown]
  - Stress [Unknown]
  - Therapeutic response shortened [Not Recovered/Not Resolved]
  - Transient ischaemic attack [Recovered/Resolved]
  - Neutrophil count abnormal [Unknown]
  - Memory impairment [Not Recovered/Not Resolved]
  - Gait disturbance [Recovered/Resolved]
  - Weight decreased [Recovered/Resolved]
  - Nausea [Recovered/Resolved]
  - Anxiety [Unknown]
  - Constipation [Not Recovered/Not Resolved]
  - Dizziness [Recovered/Resolved]
  - Insomnia [Not Recovered/Not Resolved]
  - Drug effect delayed [Unknown]

NARRATIVE: CASE EVENT DATE: 201611
